FAERS Safety Report 4664666-3 (Version None)
Quarter: 2005Q2

REPORT INFORMATION
  Report Type: 
  Country: None (occurrence: None)
  Receive Date: 20050518
  Receipt Date: 20041229
  Transmission Date: 20051028
  Serious: Yes (Death)
  Sender: FDA-Public Use
  Company Number: US-SANOFI-SYNTHELABO-F01200404043

PATIENT
  Sex: Female
  Weight: 47.4 kg

DRUGS (9)
  1. OXALIPLATIN [Suspect]
     Indication: NON-SMALL CELL LUNG CANCER
     Route: 042
     Dates: start: 20041208, end: 20041208
  2. GEMCITABINE [Suspect]
     Route: 042
     Dates: start: 20041217, end: 20041217
  3. ZOCOR [Concomitant]
     Dosage: 20 MG
     Route: 048
     Dates: start: 20040301, end: 20041227
  4. ATIVAN [Concomitant]
     Indication: ANXIETY
     Dosage: 0.5 MG
     Route: 048
     Dates: start: 20040101, end: 20041227
  5. ASPIRIN [Concomitant]
     Dosage: 81 MG
     Route: 048
     Dates: start: 19900101, end: 20041227
  6. TRAZODONE [Concomitant]
     Indication: INSOMNIA
     Route: 048
     Dates: start: 20041015, end: 20041227
  7. LOVENOX [Concomitant]
     Indication: DEEP VEIN THROMBOSIS
     Route: 058
     Dates: start: 20041129, end: 20041227
  8. COUMADIN [Concomitant]
     Indication: DEEP VEIN THROMBOSIS
     Dosage: 5 MG
     Route: 048
     Dates: start: 20041130, end: 20041227
  9. COMPAZINE [Concomitant]
     Indication: PROPHYLAXIS OF NAUSEA AND VOMITING
     Dosage: 10 MG
     Route: 048
     Dates: start: 20041117, end: 20041227

REACTIONS (2)
  - CORONARY ARTERY DISEASE [None]
  - DEEP VEIN THROMBOSIS [None]
